FAERS Safety Report 5958234-0 (Version None)
Quarter: 2008Q4

REPORT INFORMATION
  Report Type: 
  Country: None (occurrence: None)
  Receive Date: 20081117
  Receipt Date: 20081117
  Transmission Date: 20090506
  Serious: Yes (Disabling)
  Sender: FDA-Public Use
  Company Number: None

PATIENT
  Age: 42 Year
  Sex: Female
  Weight: 63.05 kg

DRUGS (1)
  1. PROTONIX [Suspect]
     Indication: GASTROOESOPHAGEAL REFLUX DISEASE
     Dosage: 2 PER DAY
     Dates: start: 20081010, end: 20081024

REACTIONS (4)
  - EYE MOVEMENT DISORDER [None]
  - EYE PAIN [None]
  - MIOSIS [None]
  - PHOTOPHOBIA [None]
